FAERS Safety Report 5900858-0 (Version None)
Quarter: 2008Q3

REPORT INFORMATION
  Report Type: 
  Country: None (occurrence: None)
  Receive Date: 20080924
  Receipt Date: 20080226
  Transmission Date: 20090109
  Serious: Yes (Other)
  Sender: FDA-Public Use
  Company Number: 2008-00183FE

PATIENT
  Age: 58 Year
  Sex: Male

DRUGS (6)
  1. MINIRIN [Suspect]
     Indication: PITUITARY TUMOUR BENIGN
     Dosage: 0.3 MG
     Route: 048
  2. CORTISONE ACETATE [Concomitant]
  3. LEVOTHYROXINE SODIUM [Concomitant]
  4. TESTOSTERONE ENANTHATE [Concomitant]
  5. SOTALOL HCL [Concomitant]
  6. PHENPROCOUMON [Concomitant]

REACTIONS (8)
  - BLOOD OSMOLARITY DECREASED [None]
  - DRUG TOXICITY [None]
  - GENERAL PHYSICAL HEALTH DETERIORATION [None]
  - HYPONATRAEMIA [None]
  - INAPPROPRIATE ANTIDIURETIC HORMONE SECRETION [None]
  - OVERDOSE [None]
  - SOMNOLENCE [None]
  - UPPER RESPIRATORY TRACT INFECTION [None]
